FAERS Safety Report 4617898-4 (Version None)
Quarter: 2005Q1

REPORT INFORMATION
  Report Type: 
  Country: None (occurrence: None)
  Receive Date: 20050322
  Receipt Date: 20050314
  Transmission Date: 20050727
  Serious: Yes (Other)
  Sender: FDA-Public Use
  Company Number: DEWYE505115MAR05

PATIENT
  Sex: Female

DRUGS (2)
  1. VENLAFAXINE HCL [Suspect]
     Dosage: 300 MG PER DAY ORAL; FOR QUITE A LONG TIME; SEE IMAGE
     Route: 048
  2. NORTRILEN (NORTRIPTYLINE HYDROCHLORIDE) [Concomitant]

REACTIONS (2)
  - COORDINATION ABNORMAL [None]
  - DRUG INTERACTION [None]
